FAERS Safety Report 9655695 (Version 1)
Quarter: 2013Q4

REPORT INFORMATION
  Report Type: Spontaneous
  Country: US (occurrence: US)
  Receive Date: 20131030
  Receipt Date: 20131030
  Transmission Date: 20140711
  Serious: No
  Sender: FDA-Public Use
  Company Number: US-BIOGENIDEC-2013BI101433

PATIENT
  Sex: Female

DRUGS (2)
  1. TYSABRI [Suspect]
     Indication: MULTIPLE SCLEROSIS
     Route: 042
     Dates: start: 20120301
  2. AVONEX [Concomitant]
     Indication: MULTIPLE SCLEROSIS
     Route: 030

REACTIONS (6)
  - White blood cell count increased [Unknown]
  - Red cell distribution width increased [Unknown]
  - Red blood cell nucleated morphology present [Unknown]
  - Urticaria [Unknown]
  - Blood pressure decreased [Unknown]
  - Lymphocyte count increased [Unknown]
